FAERS Safety Report 6430421-7 (Version None)
Quarter: 2009Q4

REPORT INFORMATION
  Report Type: 
  Country: None (occurrence: None)
  Receive Date: 20091106
  Receipt Date: 20091103
  Transmission Date: 20100525
  Serious: Yes (Death)
  Sender: FDA-Public Use
  Company Number: GB-ABBOTT-09P-167-0606662-00

PATIENT
  Age: 47 Year
  Sex: Female

DRUGS (1)
  1. SEVOFLURANE [Suspect]
     Indication: SOMNOLENCE

REACTIONS (2)
  - DRUG TOXICITY [None]
  - OFF LABEL USE [None]
